FAERS Safety Report 15612184 (Version 6)
Quarter: 2019Q3

REPORT INFORMATION
  Report Type: Report from Study
  Country: DE (occurrence: DE)
  Receive Date: 20181113
  Receipt Date: 20190910
  Transmission Date: 20191004
  Serious: Yes (Life-Threatening, Other)
  Sender: FDA-Public Use
  Company Number: DE-ROCHE-2209885

PATIENT
  Age: 56 Year
  Sex: Male

DRUGS (10)
  1. TORASEMID [Concomitant]
     Active Substance: TORSEMIDE
     Indication: OEDEMA
  2. TORASEMID [Concomitant]
     Active Substance: TORSEMIDE
     Indication: NON-SMALL CELL LUNG CANCER
     Route: 048
  3. IDEOS [Concomitant]
     Active Substance: CALCIUM CARBONATE\CHOLECALCIFEROL
     Route: 048
  4. NOVAMINSULFON [Concomitant]
     Active Substance: METAMIZOLE
     Indication: BACK PAIN
     Route: 048
     Dates: start: 20181021
  5. TAMSULOSIN [Concomitant]
     Active Substance: TAMSULOSIN
     Indication: BENIGN PROSTATIC HYPERPLASIA
     Route: 048
  6. ATEZOLIZUMAB. [Suspect]
     Active Substance: ATEZOLIZUMAB
     Indication: NON-SMALL CELL LUNG CANCER
     Dosage: LAST DOSE ON 05/NOV/2018
     Route: 042
     Dates: start: 20181010
  7. FOLIC ACID. [Concomitant]
     Active Substance: FOLIC ACID
     Indication: NON-SMALL CELL LUNG CANCER
     Route: 048
     Dates: end: 20181126
  8. NOVAMINSULFON [Concomitant]
     Active Substance: METAMIZOLE
     Route: 048
     Dates: start: 20181022
  9. MORPHINE [Concomitant]
     Active Substance: MORPHINE
     Route: 048
     Dates: start: 20181022
  10. MORPHINE [Concomitant]
     Active Substance: MORPHINE
     Indication: BACK PAIN
     Route: 048
     Dates: start: 2017, end: 20181021

REACTIONS (4)
  - Depression [Not Recovered/Not Resolved]
  - Suicide attempt [Unknown]
  - Hepatic enzyme increased [Not Recovered/Not Resolved]
  - Back pain [Not Recovered/Not Resolved]

NARRATIVE: CASE EVENT DATE: 20181022
